FAERS Safety Report 25439371 (Version 1)
Quarter: 2025Q2

REPORT INFORMATION
  Report Type: Spontaneous
  Country: US (occurrence: None)
  Receive Date: 20250612
  Receipt Date: 20250612
  Transmission Date: 20250717
  Serious: Yes (Life-Threatening)
  Sender: FDA-CTU
  Company Number: None

PATIENT
  Age: 30 Year
  Sex: Female

DRUGS (1)
  1. CEFTRIAXONE [Suspect]
     Active Substance: CEFTRIAXONE
     Indication: Urinary tract infection
     Route: 042
     Dates: start: 20250522, end: 20250522

REACTIONS (5)
  - Anaphylactic reaction [None]
  - Angioedema [None]
  - Hypoxia [None]
  - Obstructive airways disorder [None]
  - Vomiting [None]

NARRATIVE: CASE EVENT DATE: 20250522
